FAERS Safety Report 5288859-X (Version None)
Quarter: 2007Q2

REPORT INFORMATION
  Report Type: 
  Country: None (occurrence: None)
  Receive Date: 20070405
  Receipt Date: 20070328
  Transmission Date: 20071010
  Serious: No
  Sender: FDA-Public Use
  Company Number: GB-PFIZER INC-2007015648

PATIENT
  Sex: Male

DRUGS (1)
  1. TRANEXAMIC ACID (IV) [Suspect]
     Indication: GASTROINTESTINAL HAEMORRHAGE

REACTIONS (2)
  - GASTROINTESTINAL TUBE INSERTION [None]
  - NO ADVERSE EFFECT [None]
